FAERS Safety Report 6022386-7 (Version None)
Quarter: 2008Q4

REPORT INFORMATION
  Report Type: 
  Country: None (occurrence: None)
  Receive Date: 20081223
  Receipt Date: 20081223
  Transmission Date: 20090506
  Serious: No
  Sender: FDA-Public Use
  Company Number: None

PATIENT
  Age: 32 Year
  Sex: Female
  Weight: 56.6996 kg

DRUGS (1)
  1. TRAMADOL HCL [Suspect]
     Indication: DYSMENORRHOEA
     Dosage: 1 TABLET AS NEEDED PO
     Route: 048
     Dates: start: 20081220, end: 20081220

REACTIONS (2)
  - INSOMNIA [None]
  - PRURITUS GENERALISED [None]
